FAERS Safety Report 8207018-1 (Version None)
Quarter: 2012Q1

REPORT INFORMATION
  Report Type: 
  Country: None (occurrence: None)
  Receive Date: 20120314
  Receipt Date: 20120305
  Transmission Date: 20120608
  Serious: Yes (Other)
  Sender: FDA-Public Use
  Company Number: US-US-EMD SERONO, INC.-7012918

PATIENT
  Sex: Female
  Weight: 57 kg

DRUGS (1)
  1. REBIF [Suspect]
     Indication: MULTIPLE SCLEROSIS
     Route: 058
     Dates: start: 20070718

REACTIONS (6)
  - SENSATION OF FOREIGN BODY [None]
  - FATIGUE [None]
  - CARPAL TUNNEL SYNDROME [None]
  - INSOMNIA [None]
  - PRURITUS [None]
  - ULNAR TUNNEL SYNDROME [None]
